FAERS Safety Report 7743543-5 (Version None)
Quarter: 2011Q3

REPORT INFORMATION
  Report Type: 
  Country: None (occurrence: None)
  Receive Date: 20110912
  Receipt Date: 20110901
  Transmission Date: 20111222
  Serious: Yes (Hospitalization)
  Sender: FDA-Public Use
  Company Number: FR-JNJFOC-20110801498

PATIENT
  Age: 44 Year
  Sex: Female

DRUGS (6)
  1. REMICADE [Suspect]
     Route: 042
     Dates: start: 20080507, end: 20090501
  2. IMURAN [Suspect]
     Indication: COLITIS ULCERATIVE
     Route: 048
     Dates: start: 20070614, end: 20081201
  3. REMICADE [Suspect]
     Route: 042
     Dates: start: 20090601
  4. REMICADE [Suspect]
     Route: 042
     Dates: start: 20070614, end: 20071201
  5. PREDNISOLONE [Concomitant]
     Indication: COLITIS ULCERATIVE
     Route: 048
     Dates: start: 20000101
  6. REMICADE [Suspect]
     Indication: COLITIS ULCERATIVE
     Route: 042
     Dates: start: 20110816

REACTIONS (2)
  - CERVICAL DYSPLASIA [None]
  - THYROID CANCER [None]
